FAERS Safety Report 21259504 (Version 2)
Quarter: 2022Q3

REPORT INFORMATION
  Report Type: Report from Study
  Country: US (occurrence: US)
  Receive Date: 20220826
  Receipt Date: 20220905
  Transmission Date: 20221027
  Serious: Yes (Hospitalization)
  Sender: FDA-Public Use
  Company Number: US-ABBVIE-22K-163-4515690-00

PATIENT
  Age: 61 Year
  Sex: Female

DRUGS (1)
  1. HUMIRA [Suspect]
     Active Substance: ADALIMUMAB
     Indication: Hidradenitis
     Dosage: CITRATE FREE
     Route: 058
     Dates: start: 20220819

REACTIONS (5)
  - Dyspepsia [Unknown]
  - Grip strength decreased [Unknown]
  - Abdominal pain [Unknown]
  - Blood glucose increased [Unknown]
  - Migraine [Unknown]

NARRATIVE: CASE EVENT DATE: 20220801
